FAERS Safety Report 4689123-X (Version None)
Quarter: 2005Q2

REPORT INFORMATION
  Report Type: 
  Country: None (occurrence: None)
  Receive Date: 20050613
  Receipt Date: 20050513
  Transmission Date: 20051028
  Serious: Yes (Death)
  Sender: FDA-Public Use
  Company Number: 2005AP02806

PATIENT
  Age: 27870 Day
  Sex: Male

DRUGS (3)
  1. XYLOCAINE [Suspect]
     Indication: LOCAL ANAESTHESIA
     Route: 061
     Dates: start: 20050511, end: 20050511
  2. GLUCAGON FS [Suspect]
     Route: 030
     Dates: start: 20050511, end: 20050511
  3. MEDICINALPRODUCT NOT SPECIFIED BY SENDER [Concomitant]

REACTIONS (4)
  - ANAPHYLACTIC SHOCK [None]
  - BRADYCARDIA [None]
  - CARDIAC ARREST [None]
  - DRUG INEFFECTIVE [None]
